FAERS Safety Report 23155265 (Version 4)
Quarter: 2025Q3

REPORT INFORMATION
  Report Type: Spontaneous
  Country: US (occurrence: US)
  Receive Date: 20231107
  Receipt Date: 20250822
  Transmission Date: 20251020
  Serious: No
  Sender: SANOFI AVENTIS
  Company Number: US-SA-SAC20231030001406

PATIENT
  Sex: Male

DRUGS (3)
  1. DUPIXENT [Suspect]
     Active Substance: DUPILUMAB
     Indication: Eczema
     Route: 065
  2. DUPIXENT [Suspect]
     Active Substance: DUPILUMAB
     Indication: Dermatitis atopic
     Dosage: 200 MG, Q4W
     Route: 058
     Dates: start: 202310
  3. DUPIXENT [Suspect]
     Active Substance: DUPILUMAB
     Indication: Eczema infantile

REACTIONS (4)
  - Eczema infantile [Unknown]
  - Condition aggravated [Unknown]
  - Dermatitis atopic [Unknown]
  - Therapeutic response shortened [Unknown]
